FAERS Safety Report 9661314 (Version 1)
Quarter: 2013Q4

REPORT INFORMATION
  Report Type: Spontaneous
  Country: US (occurrence: None)
  Receive Date: 20131030
  Receipt Date: 20131030
  Transmission Date: 20140711
  Serious: No
  Sender: FDA-Public Use
  Company Number: 2013083467

PATIENT
  Sex: Male

DRUGS (1)
  1. FRAGMIN [Suspect]

REACTIONS (1)
  - Haematoma [None]
